FAERS Safety Report 5317654-8 (Version None)
Quarter: 2007Q2

REPORT INFORMATION
  Report Type: 
  Country: None (occurrence: None)
  Receive Date: 20070507
  Receipt Date: 20070425
  Transmission Date: 20071010
  Serious: Yes (Hospitalization)
  Sender: FDA-Public Use
  Company Number: PHEH2007US05370

PATIENT
  Age: 72 Year
  Sex: Female

DRUGS (1)
  1. ZELNORM [Suspect]

REACTIONS (4)
  - AMNESIA [None]
  - CARDIAC DISORDER [None]
  - CARDIAC OPERATION [None]
  - ISCHAEMIC STROKE [None]
